FAERS Safety Report 5593582-8 (Version None)
Quarter: 2008Q1

REPORT INFORMATION
  Report Type: 
  Country: None (occurrence: None)
  Receive Date: 20080116
  Receipt Date: 20080110
  Transmission Date: 20080703
  Serious: Yes (Hospitalization)
  Sender: FDA-Public Use
  Company Number: US-BRISTOL-MYERS SQUIBB COMPANY-14009732

PATIENT
  Age: 61 Year
  Sex: Female

DRUGS (11)
  1. ORENCIA [Suspect]
     Indication: RHEUMATOID ARTHRITIS
     Dosage: 3RD INFUSION GIVEN ON 17-SEP-2007. 0, 2, 4 AND THEN EVERY 4 WKS THEREAFTER.
     Route: 042
     Dates: start: 20070820
  2. CELEXA [Concomitant]
     Indication: DEPRESSION
  3. ARAVA [Concomitant]
     Indication: RHEUMATOID ARTHRITIS
  4. CELEBREX [Concomitant]
     Indication: RHEUMATOID ARTHRITIS
  5. VASOTEC [Concomitant]
     Indication: HYPERTENSION
  6. LIPITOR [Concomitant]
     Indication: BLOOD CHOLESTEROL INCREASED
  7. CALCIUM GLUCONATE [Concomitant]
     Dosage: 1 DOSAGE FORM = 600 (NOT SPECIFIED).
  8. ZANTAC [Concomitant]
  9. PRED FORTE [Concomitant]
  10. FLONASE [Concomitant]
     Dosage: NASAL SPRAY
     Route: 045
  11. XANAX [Concomitant]
     Dosage: 1 DOSAGE FORM = 0.25 (NO UNITS).

REACTIONS (1)
  - ATRIAL FIBRILLATION [None]
